FAERS Safety Report 12982140 (Version 1)
Quarter: 2016Q4

REPORT INFORMATION
  Report Type: Spontaneous
  Country: FR (occurrence: FR)
  Receive Date: 20161129
  Receipt Date: 20161129
  Transmission Date: 20170207
  Serious: Yes (Other)
  Sender: FDA-Public Use
  Company Number: FR-SA-2016SA215119

PATIENT
  Age: 25 Year
  Sex: Male

DRUGS (1)
  1. CEREZYME [Suspect]
     Active Substance: IMIGLUCERASE
     Indication: GAUCHER^S DISEASE TYPE I
     Dosage: DOSE : 9 VIALS / 3 WEEKS (THAT IS 60 U/ 3 WEEKS; THAT IS 40 U/2 WEEKS)
     Route: 041
     Dates: start: 199701

REACTIONS (1)
  - Osteonecrosis [Unknown]
